FAERS Safety Report 25015105 (Version 1)
Quarter: 2025Q1

REPORT INFORMATION
  Report Type: Spontaneous
  Country: US (occurrence: US)
  Receive Date: 20250226
  Receipt Date: 20250226
  Transmission Date: 20250408
  Serious: Yes (Life-Threatening, Other)
  Sender: PFIZER
  Company Number: US-PFIZER INC-PV202500023173

PATIENT
  Age: 71 Year
  Sex: Male

DRUGS (8)
  1. HYDROCORTISONE [Suspect]
     Active Substance: HYDROCORTISONE
     Indication: Hyperadrenocorticism
  2. HYDROCORTISONE [Suspect]
     Active Substance: HYDROCORTISONE
     Indication: Meningioma
  3. OSILODROSTAT [Concomitant]
     Active Substance: OSILODROSTAT
     Indication: Hyperadrenocorticism
     Dosage: 2 MG AM, 3 MG PM, 2X/DAY (POSTOPERATIVE WEEK 11)
  4. OSILODROSTAT [Concomitant]
     Active Substance: OSILODROSTAT
     Indication: Meningioma
     Dosage: 2 MG BID, (POSTOPERATIVE WEEK 13)
  5. OSILODROSTAT [Concomitant]
     Active Substance: OSILODROSTAT
     Dosage: 2 MG AM, 1 MG PM (POSTOPERATIVE WEEK 15)
  6. OSILODROSTAT [Concomitant]
     Active Substance: OSILODROSTAT
     Dosage: 1 MG BID (POSTOPERATIVE WEEK 18)
  7. OSILODROSTAT [Concomitant]
     Active Substance: OSILODROSTAT
     Dosage: 1 MG DAILY (POSTOPERATIVE WEEK 22)
  8. OSILODROSTAT [Concomitant]
     Active Substance: OSILODROSTAT
     Dosage: (POSTOPERATIVE WEEK 24)

REACTIONS (1)
  - Osteonecrosis [Unknown]
